FAERS Safety Report 4738221-0 (Version None)
Quarter: 2005Q3

REPORT INFORMATION
  Report Type: 
  Country: None (occurrence: None)
  Receive Date: 20050808
  Receipt Date: 20050725
  Transmission Date: 20060218
  Serious: Yes (Hospitalization)
  Sender: FDA-Public Use
  Company Number: MPS1-10396

PATIENT
  Age: 29 Year
  Sex: Male
  Weight: 65 kg

DRUGS (1)
  1. ALDURAZYME [Suspect]
     Dosage: 0.58 MG/KG QWK IV
     Route: 042
     Dates: start: 20030630

REACTIONS (3)
  - CARDIAC PSEUDOANEURYSM [None]
  - INTRACARDIAC THROMBUS [None]
  - VENOUS THROMBOSIS [None]
